FAERS Safety Report 9705984 (Version 1)
Quarter: 2013Q4

REPORT INFORMATION
  Report Type: Spontaneous
  Country: US (occurrence: US)
  Receive Date: 20131122
  Receipt Date: 20131122
  Transmission Date: 20140711
  Serious: No
  Sender: FDA-Public Use
  Company Number: US-TEVA-443973USA

PATIENT
  Sex: Male
  Weight: 170.25 kg

DRUGS (3)
  1. PROAIR HFA [Suspect]
     Indication: ASTHMA
  2. OXYGEN [Concomitant]
  3. BLOOD PRESSURE MEDICATION [Concomitant]
     Indication: HYPERTENSION

REACTIONS (1)
  - Cough [Not Recovered/Not Resolved]
